FAERS Safety Report 6087536-5 (Version None)
Quarter: 2009Q1

REPORT INFORMATION
  Report Type: 
  Country: None (occurrence: None)
  Receive Date: 20090223
  Receipt Date: 20090212
  Transmission Date: 20090719
  Serious: Yes (Hospitalization, Other)
  Sender: FDA-Public Use
  Company Number: IT-PFIZER INC-2008095665

PATIENT

DRUGS (14)
  1. PREGABALIN [Suspect]
     Indication: NEURALGIA
  2. SPIRONOLACTONE [Concomitant]
  3. ACETYLSALICYLIC ACID SRT [Concomitant]
  4. FUROSEMIDE [Concomitant]
  5. HYDRALAZINE HCL [Concomitant]
  6. ISOSORBIDE DINITRATE [Concomitant]
  7. LOSARTAN [Concomitant]
  8. GLYBURIDE [Concomitant]
  9. BISOPROLOL [Concomitant]
  10. PRAMIPEXOLE DIHYDROCHLORIDE [Concomitant]
  11. TIOTROPIUM [Concomitant]
  12. FLUTICASONE PROPIONATE [Concomitant]
  13. PRAVASTATIN [Concomitant]
  14. ALBUTEROL [Concomitant]

REACTIONS (4)
  - CARDIAC FAILURE [None]
  - MITRAL VALVE INCOMPETENCE [None]
  - TRICUSPID VALVE INCOMPETENCE [None]
  - VENTRICULAR DYSFUNCTION [None]
